FAERS Safety Report 6292912-1 (Version None)
Quarter: 2009Q3

REPORT INFORMATION
  Report Type: 
  Country: None (occurrence: None)
  Receive Date: 20090731
  Receipt Date: 20090721
  Transmission Date: 20100115
  Serious: Yes (Hospitalization)
  Sender: FDA-Public Use
  Company Number: JP-ABBOTT-09P-087-0585320-00

PATIENT
  Sex: Male
  Weight: 72 kg

DRUGS (6)
  1. CLARITHROMYCIN [Suspect]
     Indication: GASTRIC ULCER
     Route: 048
     Dates: start: 20090624, end: 20090630
  2. CLARITHROMYCIN [Suspect]
     Indication: HELICOBACTER INFECTION
  3. OMEPRAL [Suspect]
     Indication: GASTRIC ULCER
     Route: 048
     Dates: start: 20090624, end: 20090630
  4. OMEPRAL [Suspect]
     Indication: HELICOBACTER INFECTION
  5. SAWACILLIN [Suspect]
     Indication: GASTRIC ULCER
     Route: 048
     Dates: start: 20090624, end: 20090630
  6. SAWACILLIN [Suspect]
     Indication: HELICOBACTER INFECTION

REACTIONS (1)
  - URTICARIA [None]
